FAERS Safety Report 9869240 (Version 1)
Quarter: 2014Q1

REPORT INFORMATION
  Report Type: Spontaneous
  Country: DE (occurrence: DE)
  Receive Date: 20140205
  Receipt Date: 20140205
  Transmission Date: 20141002
  Serious: Yes (Congenital Anomaly)
  Sender: FDA-Public Use
  Company Number: DE-ASTRAZENECA-2014SE06138

PATIENT
  Age: 1 Day
  Sex: Male
  Weight: 1.6 kg

DRUGS (3)
  1. SEROQUEL [Suspect]
     Indication: BORDERLINE PERSONALITY DISORDER
     Route: 064
     Dates: start: 20090926, end: 20091105
  2. CIPRALEX [Suspect]
     Indication: DEPRESSION
     Route: 064
     Dates: start: 20090926, end: 20091105
  3. MEDIKINET [Suspect]
     Indication: ATTENTION DEFICIT/HYPERACTIVITY DISORDER
     Route: 064
     Dates: start: 20090926, end: 20091105

REACTIONS (1)
  - Haemangioma [Recovered/Resolved with Sequelae]
